FAERS Safety Report 6438308-0 (Version None)
Quarter: 2009Q4

REPORT INFORMATION
  Report Type: 
  Country: None (occurrence: None)
  Receive Date: 20091112
  Receipt Date: 20091105
  Transmission Date: 20100525
  Serious: Yes (Other)
  Sender: FDA-Public Use
  Company Number: CHNY2009BR03584

PATIENT
  Age: 67 Year
  Sex: Male

DRUGS (1)
  1. CATAFLAM [Suspect]
     Indication: MYALGIA
     Dosage: UNK
     Route: 061
     Dates: start: 20091031, end: 20091101

REACTIONS (6)
  - APPLICATION SITE PAIN [None]
  - APPLICATION SITE SWELLING [None]
  - APPLICATION SITE VESICLES [None]
  - DRUG INEFFECTIVE [None]
  - HYPERSENSITIVITY [None]
  - PULMONARY CONGESTION [None]
